FAERS Safety Report 16118804 (Version 1)
Quarter: 2019Q1

REPORT INFORMATION
  Report Type: Spontaneous
  Country: DE (occurrence: DE)
  Receive Date: 20190326
  Receipt Date: 20190326
  Transmission Date: 20190418
  Serious: Yes (Other)
  Sender: FDA-Public Use
  Company Number: DE-TEVA-2019-DE-1029943

PATIENT
  Age: 68 Year
  Sex: Male

DRUGS (1)
  1. BISOPROLOL-RATIOPHARM 1,25 MG TABLETTEN [Suspect]
     Active Substance: BISOPROLOL
     Indication: EXTRASYSTOLES
     Dosage: 1.25 MILLIGRAM DAILY;
     Route: 048
     Dates: start: 20190305

REACTIONS (4)
  - Dizziness [Unknown]
  - Fatigue [Unknown]
  - Headache [Unknown]
  - Heart rate decreased [Unknown]
